FAERS Safety Report 15553771 (Version 3)
Quarter: 2020Q3

REPORT INFORMATION
  Report Type: Spontaneous
  Country: BR (occurrence: BR)
  Receive Date: 20181026
  Receipt Date: 20190417
  Transmission Date: 20201105
  Serious: Yes (Hospitalization, Other)
  Sender: FDA-Public Use
  Company Number: BR-ROCHE-2205393

PATIENT
  Age: 21 Year
  Sex: Male

DRUGS (3)
  1. EMICIZUMAB. [Suspect]
     Active Substance: EMICIZUMAB
     Indication: HAEMOPHILIA
     Route: 065
     Dates: start: 201805
  2. MABTHERA [Suspect]
     Active Substance: RITUXIMAB
     Indication: IMMUNOSUPPRESSION
  3. MABTHERA [Suspect]
     Active Substance: RITUXIMAB
     Indication: HAEMOPHILIA
     Route: 065
     Dates: start: 201604

REACTIONS (3)
  - Off label use [Unknown]
  - Haematuria [Unknown]
  - Intentional product use issue [Unknown]
